FAERS Safety Report 5135750-5 (Version None)
Quarter: 2006Q4

REPORT INFORMATION
  Report Type: 
  Country: None (occurrence: None)
  Receive Date: 20061020
  Receipt Date: 20061006
  Transmission Date: 20070319
  Serious: Yes (Other)
  Sender: FDA-Public Use
  Company Number: 2006SP003931

PATIENT
  Age: 46 Year
  Sex: Male

DRUGS (2)
  1. INTERFERON (MANUFACTURER UNKNOWN) [Suspect]
     Indication: DRUG USE FOR UNKNOWN INDICATION
  2. ZOLOFT [Concomitant]

REACTIONS (6)
  - AMNESIA [None]
  - CRYING [None]
  - EMOTIONAL DISTRESS [None]
  - HEAD INJURY [None]
  - PAIN [None]
  - ROAD TRAFFIC ACCIDENT [None]
